FAERS Safety Report 9940472 (Version 2)
Quarter: 2014Q1

REPORT INFORMATION
  Report Type: Report from Study
  Country: JP (occurrence: JP)
  Receive Date: 20140303
  Receipt Date: 20140312
  Transmission Date: 20141002
  Serious: Yes (Death)
  Sender: FDA-Public Use
  Company Number: JP-PFIZER INC-2014055625

PATIENT
  Age: 83 Year
  Sex: Male
  Weight: 50.8 kg

DRUGS (14)
  1. UNASYN-S [Suspect]
     Indication: PNEUMONIA
     Dosage: 3 G, 2X/DAY
     Route: 041
     Dates: start: 20140204, end: 20140204
  2. UNASYN-S [Suspect]
     Dosage: 3 G, 4X/DAY
     Route: 041
     Dates: start: 20140205
  3. ADRENALIN [Concomitant]
     Dosage: UNK
  4. NORADRENALINE [Concomitant]
     Dosage: UNK
  5. LASIX [Concomitant]
     Dosage: UNK
     Dates: start: 20140205
  6. HUMULIN R [Concomitant]
     Dosage: UNK
     Dates: start: 20140205
  7. BAYASPIRIN [Concomitant]
     Route: 048
  8. LANSOPRAZOL [Concomitant]
     Route: 048
  9. FEBURIC [Concomitant]
     Route: 048
  10. ARICEPT [Concomitant]
     Route: 048
  11. FLIVAS [Concomitant]
     Route: 048
  12. TAMBOCOR [Concomitant]
     Route: 048
  13. ALLEGRA [Concomitant]
     Route: 048
  14. LOXOPROFEN [Concomitant]
     Route: 048

REACTIONS (1)
  - Asphyxia [Fatal]
